FAERS Safety Report 21382413 (Version 3)
Quarter: 2023Q4

REPORT INFORMATION
  Report Type: Report from Study
  Country: DE (occurrence: None)
  Receive Date: 20220927
  Receipt Date: 20231117
  Transmission Date: 20240110
  Serious: Yes (Hospitalization)
  Sender: FDA-Public Use
  Company Number: DE-ROCHE-3185419

PATIENT
  Age: 40 Year
  Sex: Female
  Weight: 53 kg

DRUGS (3)
  1. ATEZOLIZUMAB [Suspect]
     Active Substance: ATEZOLIZUMAB
     Indication: Ovarian cancer
     Dosage: LAST DOSE PRIOR TO SAE 15/SEP/2022 AND MOST RECENT DOSE 18/AUG/2022
     Route: 042
     Dates: start: 20220126, end: 20220927
  2. BEVACIZUMAB [Suspect]
     Active Substance: BEVACIZUMAB
     Indication: Ovarian cancer
     Dosage: LAST DOSE PRIOR TO SAE 15/SEP/22
     Route: 042
     Dates: start: 20220126, end: 20220927
  3. PACLITAXEL [Suspect]
     Active Substance: PACLITAXEL
     Indication: Ovarian cancer
     Dosage: LAST DOSE PRIOR TO SAE: 08/SEP/2022
     Route: 042
     Dates: start: 20220126, end: 20220927

REACTIONS (1)
  - General physical health deterioration [Recovered/Resolved]

NARRATIVE: CASE EVENT DATE: 20220920
